FAERS Safety Report 20701029 (Version 1)
Quarter: 2022Q2

REPORT INFORMATION
  Report Type: Spontaneous
  Country: US (occurrence: US)
  Receive Date: 20220412
  Receipt Date: 20220412
  Transmission Date: 20220721
  Serious: Yes (Other)
  Sender: FDA-Public Use
  Company Number: US-PFIZER INC-202200511328

PATIENT
  Age: 60 Year
  Sex: Female

DRUGS (3)
  1. CYTOMEL [Suspect]
     Active Substance: LIOTHYRONINE SODIUM
     Indication: Thyroid disorder
     Dosage: 25 UG, 1X/DAY
  2. CYTOMEL [Suspect]
     Active Substance: LIOTHYRONINE SODIUM
     Indication: Autoimmune thyroiditis
  3. LEVOTHYROXINE [Concomitant]
     Active Substance: LEVOTHYROXINE
     Indication: Thyroid disorder
     Dosage: UNK

REACTIONS (16)
  - Meniere^s disease [Unknown]
  - Lyme disease [Unknown]
  - Dizziness [Unknown]
  - Dyspnoea [Unknown]
  - Vertigo [Unknown]
  - Pain [Unknown]
  - Psychomotor hyperactivity [Unknown]
  - Blood thyroid stimulating hormone decreased [Unknown]
  - Thyroxine abnormal [Unknown]
  - Tri-iodothyronine abnormal [Unknown]
  - Thyroid atrophy [Unknown]
  - Intentional product use issue [Recovering/Resolving]
  - Illness [Recovering/Resolving]
  - Asthenia [Recovering/Resolving]
  - Dysstasia [Recovering/Resolving]
  - Fall [Recovering/Resolving]
